FAERS Safety Report 20794515 (Version 1)
Quarter: 2022Q2

REPORT INFORMATION
  Report Type: Spontaneous
  Country: CZ (occurrence: CZ)
  Receive Date: 20220506
  Receipt Date: 20220506
  Transmission Date: 20220721
  Serious: Yes (Hospitalization)
  Sender: FDA-Public Use
  Company Number: CZ-MYLANLABS-2022M1033203

PATIENT
  Age: 44 Year
  Sex: Male

DRUGS (4)
  1. INSULIN GLARGINE [Suspect]
     Active Substance: INSULIN GLARGINE
     Indication: Cardiomyopathy
     Dosage: UNK
     Route: 065
  2. ISOPROTERENOL HYDROCHLORIDE [Suspect]
     Active Substance: ISOPROTERENOL HYDROCHLORIDE
     Indication: Bradycardia
     Dosage: UNK, CONTINUOUS INFUSION
     Route: 065
  3. CALCIUM GLUCONATE [Suspect]
     Active Substance: CALCIUM GLUCONATE
     Indication: Cardiomyopathy
     Dosage: UNK
     Route: 065
  4. DEXTROSE [Suspect]
     Active Substance: DEXTROSE
     Indication: Cardiomyopathy
     Dosage: UNK
     Route: 065

REACTIONS (2)
  - Drug ineffective for unapproved indication [Unknown]
  - Off label use [Unknown]
